FAERS Safety Report 18503132 (Version 1)
Quarter: 2020Q4

REPORT INFORMATION
  Report Type: Other
  Country: CA (occurrence: CA)
  Receive Date: 20201114
  Receipt Date: 20201114
  Transmission Date: 20210114
  Serious: Yes (Other)
  Sender: FDA-Public Use
  Company Number: CA-CELLTRION INC.-2020CA030983

PATIENT

DRUGS (10)
  1. TYLENOL [Concomitant]
     Active Substance: ACETAMINOPHEN
  2. METHYLPREDNISOLONE SODIUM SUCCINATE. [Concomitant]
     Active Substance: METHYLPREDNISOLONE SODIUM SUCCINATE
  3. PLAQUENIL [Concomitant]
     Active Substance: HYDROXYCHLOROQUINE SULFATE
  4. CALCIUM [Concomitant]
     Active Substance: CALCIUM
  5. PREDNISONE. [Concomitant]
     Active Substance: PREDNISONE
  6. RISEDRONATE SODIUM. [Concomitant]
     Active Substance: RISEDRONATE SODIUM
     Dosage: 35.0 MILLIGRAM
     Route: 065
  7. RITUXIMAB (UNKNOWN) [Suspect]
     Active Substance: RITUXIMAB
     Indication: ANTISYNTHETASE SYNDROME
     Dosage: 1000.0 MILLIGRAM
     Route: 042
  8. MYCOPHENOLATE MOFETIL. [Suspect]
     Active Substance: MYCOPHENOLATE MOFETIL
     Indication: ANTISYNTHETASE SYNDROME
     Dosage: 500.0 MILLIGRAM, 2 EVERY 1 DAY
     Route: 065
  9. PANTOLOC [PANTOPRAZOLE] [Concomitant]
     Active Substance: PANTOPRAZOLE SODIUM
  10. RISEDRONATE [Concomitant]
     Active Substance: RISEDRONATE SODIUM

REACTIONS (22)
  - Neutrophil count increased [Unknown]
  - Blood potassium increased [Unknown]
  - Blood sodium decreased [Unknown]
  - Lipids increased [Unknown]
  - Interstitial lung disease [Unknown]
  - Pain [Unknown]
  - White blood cell count increased [Unknown]
  - Arthralgia [Unknown]
  - Blood cholesterol increased [Unknown]
  - Fatigue [Unknown]
  - Blood creatine phosphokinase increased [Unknown]
  - Nitrite urine present [Unknown]
  - Off label use [Unknown]
  - Lymphocyte count decreased [Unknown]
  - Mean cell haemoglobin concentration increased [Unknown]
  - Nucleated red cells [Unknown]
  - Asthenia [Unknown]
  - Alanine aminotransferase increased [Unknown]
  - Aspartate aminotransferase increased [Unknown]
  - Blood creatinine decreased [Unknown]
  - Urine leukocyte esterase positive [Unknown]
  - White blood cell count decreased [Unknown]
